FAERS Safety Report 11475233 (Version 1)
Quarter: 2015Q3

REPORT INFORMATION
  Report Type: Other
  Country: US (occurrence: US)
  Receive Date: 20150909
  Receipt Date: 20150909
  Transmission Date: 20151125
  Serious: No
  Sender: FDA-Public Use
  Company Number: US-ACORDA-ACO_106352_2014

PATIENT
  Age: 42 Year
  Sex: Male
  Weight: 95.24 kg

DRUGS (1)
  1. TIZANIDINE. [Suspect]
     Active Substance: TIZANIDINE
     Indication: HEADACHE
     Dosage: 6 MG, ONCE
     Route: 065
     Dates: start: 20140927, end: 20140927

REACTIONS (2)
  - Somnolence [Recovering/Resolving]
  - Impaired driving ability [Recovering/Resolving]

NARRATIVE: CASE EVENT DATE: 20140928
